FAERS Safety Report 8773609 (Version 1)
Quarter: 2012Q4

REPORT INFORMATION
  Report Type: 
  Country: ES (occurrence: ES)
  Receive Date: 20120907
  Receipt Date: 20120907
  Transmission Date: 20130627
  Serious: Yes (Other)
  Sender: FDA-Public Use
  Company Number: ES-ELI_LILLY_AND_COMPANY-ES201209000712

PATIENT
  Age: 80 Year
  Sex: Female

DRUGS (2)
  1. ACTOS [Suspect]
     Indication: DIABETES MELLITUS
     Dosage: 15 mg, qd
     Route: 048
     Dates: start: 2006, end: 201111
  2. ACTOS [Suspect]
     Dosage: 30 mg,daily
     Route: 048
     Dates: start: 201112, end: 201205

REACTIONS (1)
  - Haematuria [Recovered/Resolved]
